FAERS Safety Report 7592520-6 (Version None)
Quarter: 2011Q3

REPORT INFORMATION
  Report Type: 
  Country: None (occurrence: None)
  Receive Date: 20110706
  Receipt Date: 20110623
  Transmission Date: 20111222
  Serious: Yes (Other)
  Sender: FDA-Public Use
  Company Number: CH-ELI_LILLY_AND_COMPANY-CH201107000038

PATIENT
  Age: 28 Year
  Sex: Female

DRUGS (8)
  1. PRAZINE                            /00595201/ [Concomitant]
     Indication: PERSONALITY DISORDER
     Dosage: 25 MG, WEEKLY (1/W)
     Route: 048
  2. ZOLPIDEM [Concomitant]
     Dosage: 10 MG, QD
     Route: 048
  3. EFFEXOR [Concomitant]
     Dosage: 150 MG, QD
     Route: 048
     Dates: start: 20110201, end: 20110501
  4. NEXIUM [Concomitant]
     Dosage: 40 MG, QD
     Route: 048
  5. CONCERTA [Concomitant]
     Indication: ATTENTION DEFICIT/HYPERACTIVITY DISORDER
     Dosage: 18 MG, QD
     Route: 048
     Dates: start: 20110215
  6. EFFEXOR [Concomitant]
     Indication: EMOTIONAL DISORDER
     Dosage: 300 MG, QD
     Route: 048
     Dates: start: 20080101, end: 20110201
  7. EFFEXOR [Concomitant]
     Dosage: 75 MG, QD
     Route: 048
     Dates: start: 20110501, end: 20110501
  8. ZYPREXA [Suspect]
     Indication: PERSONALITY DISORDER
     Dosage: 2.5 MG, QD
     Route: 048

REACTIONS (14)
  - SENSORY DISTURBANCE [None]
  - TIC [None]
  - DRUG INTERACTION [None]
  - MUSCLE TWITCHING [None]
  - ASTHENIA [None]
  - NERVOUSNESS [None]
  - CARDIOVASCULAR DISORDER [None]
  - PYREXIA [None]
  - HEADACHE [None]
  - DYSPNOEA [None]
  - DIZZINESS [None]
  - CYANOSIS [None]
  - DISTURBANCE IN ATTENTION [None]
  - ANXIETY [None]
